FAERS Safety Report 8488780-X (Version None)
Quarter: 2012Q3

REPORT INFORMATION
  Report Type: 
  Country: None (occurrence: None)
  Receive Date: 20120705
  Receipt Date: 20120621
  Transmission Date: 20120928
  Serious: Yes (Hospitalization)
  Sender: FDA-Public Use
  Company Number: ZA-BAYER-2012-058818

PATIENT
  Age: 32 Year
  Sex: Male
  Weight: 62 kg

DRUGS (12)
  1. ETHAMBUTOL HYDROCHLORIDE [Concomitant]
     Dosage: 1.2 G, QD
     Route: 048
     Dates: start: 20120522, end: 20120607
  2. PA-284 [Suspect]
     Dosage: DAILY DOSE 200 MG
     Dates: start: 20120324, end: 20120512
  3. METFORMIN HCL [Concomitant]
     Dosage: 1 G, BID
     Route: 048
     Dates: start: 20120323, end: 20120608
  4. KANAMYCIN [Concomitant]
     Dosage: 1 G, QD
     Route: 048
     Dates: start: 20120322, end: 20120607
  5. MOXIFLOXACIN [Suspect]
     Dosage: UNK
     Dates: start: 20120324, end: 20120512
  6. METFORMIN HCL [Concomitant]
     Dosage: 500 MG, BID
     Route: 048
     Dates: start: 20120313, end: 20120323
  7. GLICLAZIDE [Concomitant]
     Dosage: 80 MG, BID
     Route: 048
     Dates: start: 20120327
  8. MOXIFLOXACIN [Concomitant]
     Dosage: 400 MG, QD
     Route: 048
     Dates: start: 20120322, end: 20120603
  9. ETHIONAMIDE [Concomitant]
     Dosage: 750 MG, QD
     Route: 048
     Dates: start: 20120522, end: 20120607
  10. ETHAMBUTOL HYDROCHLORIDE [Concomitant]
     Dosage: 1.2 G, QD
     Route: 048
     Dates: start: 20120609
  11. TROPICAMIDE [Concomitant]
     Indication: MYDRIASIS
     Dosage: 8 GTT, UNK
     Route: 047
     Dates: start: 20120320, end: 20120320
  12. PYRAZINAMIDE [Suspect]
     Dosage: 1.5 G, QD
     Route: 048
     Dates: start: 20120522, end: 20120525

REACTIONS (1)
  - DRUG-INDUCED LIVER INJURY [None]
